FAERS Safety Report 8796012 (Version 1)
Quarter: 2012Q4

REPORT INFORMATION
  Report Type: 
  Country: US (occurrence: US)
  Receive Date: 20120920
  Receipt Date: 20120920
  Transmission Date: 20130627
  Serious: No
  Sender: FDA-Public Use
  Company Number: US-BAYER-2012-097838

PATIENT
  Sex: Female

DRUGS (7)
  1. BETASERON [Suspect]
     Dosage: 1 ml, QOD
     Route: 058
  2. LOTREL [Concomitant]
     Dosage: 5-10mg
  3. NUVIGIL [Concomitant]
     Dosage: 50 mg, UNK
  4. BUTALBITAL W/ASPIRIN,CAFFEINE [Concomitant]
     Dosage: 325-40-5
  5. CYMBALTA [Concomitant]
     Dosage: 30 mg, UNK
  6. XANAX [Concomitant]
     Dosage: 1 mg, UNK
  7. ZYRTEC [Concomitant]
     Dosage: 5 mg, UNK

REACTIONS (1)
  - Depression [Unknown]
